FAERS Safety Report 12789081 (Version 2)
Quarter: 2016Q4

REPORT INFORMATION
  Report Type: Spontaneous
  Country: US (occurrence: US)
  Receive Date: 20160928
  Receipt Date: 20161114
  Transmission Date: 20170207
  Serious: No
  Sender: FDA-Public Use
  Company Number: US-PFIZER INC-2016453347

PATIENT
  Age: 56 Year
  Sex: Female

DRUGS (19)
  1. ARMODAFINIL. [Concomitant]
     Active Substance: ARMODAFINIL
     Dosage: 150 MG, 1X/DAY (1 EVERY MORNING)
  2. ARIPIPRAZOLE. [Concomitant]
     Active Substance: ARIPIPRAZOLE
     Dosage: 20 MG, DAILY (M)
  3. MYRBETRIQ [Concomitant]
     Active Substance: MIRABEGRON
     Dosage: 25 MG, DAILY (M)
  4. TOPIRAMATE. [Concomitant]
     Active Substance: TOPIRAMATE
     Dosage: 50 MG, 3X/DAY (1 X THREE DAILY) (M)
  5. IPRATROPIUM [Concomitant]
     Active Substance: IPRATROPIUM
     Dosage: 2 DF, 2X/DAY (2 SPRAY TWICE DAILY) (M, A)
     Route: 045
  6. POTASSIUM [Concomitant]
     Active Substance: POTASSIUM
     Dosage: 40 MEQ, 2X/DAY  (2 X TWICE DAILY) (M,N)
  7. CAMBIA [Concomitant]
     Active Substance: DICLOFENAC POTASSIUM
     Dosage: 50 MG, AS NEEDED (1 PACKET AS NEEDED) (AN^D)
  8. NUCYNTA [Concomitant]
     Active Substance: TAPENTADOL HYDROCHLORIDE
     Dosage: 100 MG, 4X/DAY (1 X FOUR DAILY) (M, N, N)
  9. VITAMIN D3 [Concomitant]
     Active Substance: CHOLECALCIFEROL
     Dosage: 1000 IU, DAILY (M)
  10. LYRICA [Suspect]
     Active Substance: PREGABALIN
     Indication: NEUROPATHY PERIPHERAL
     Dosage: 75 MG, 2X/DAY (2 X DAILY) (M, N)
     Dates: start: 20160801
  11. AMLODIPINE BESYLATE. [Concomitant]
     Active Substance: AMLODIPINE BESYLATE
     Dosage: 5 MG, DAILY (N)
  12. FUROSEMIDE. [Concomitant]
     Active Substance: FUROSEMIDE
     Dosage: 20 MG, 2X/DAY (M, N)
  13. NORTRIPTYLINE [Concomitant]
     Active Substance: NORTRIPTYLINE
     Dosage: 30 MG, 1X/DAY (3 AT BED TIME) (M)
  14. TRAZODONE [Concomitant]
     Active Substance: TRAZODONE HYDROCHLORIDE
     Dosage: 200 MG, 1X/DAY  (2 AT BED TIME) (N)
  15. GABAPENTIN. [Concomitant]
     Active Substance: GABAPENTIN
     Dosage: 600 MG, 3X/DAY  (M, N, A, N)
  16. NITRO [Concomitant]
     Active Substance: NITROGLYCERIN
     Dosage: UNK UNK, AS NEEDED (AN^D)
  17. DOXEPIN [Concomitant]
     Active Substance: DOXEPIN
     Dosage: 100 MG, 1X/DAY (2 AT BED TIME) (N)
  18. DULOXETINE. [Concomitant]
     Active Substance: DULOXETINE
     Dosage: 120 MG, DAILY (N)
  19. METHOCARBAMOL. [Concomitant]
     Active Substance: METHOCARBAMOL
     Dosage: 1500 MG, 3X/DAY 2 X THREE DAILY) (M, A, N)

REACTIONS (1)
  - Drug ineffective [Not Recovered/Not Resolved]

NARRATIVE: CASE EVENT DATE: 20160801
